FAERS Safety Report 5514947-6 (Version None)
Quarter: 2007Q4

REPORT INFORMATION
  Report Type: 
  Country: None (occurrence: None)
  Receive Date: 20071113
  Receipt Date: 20061017
  Transmission Date: 20080405
  Serious: No
  Sender: FDA-Public Use
  Company Number: A0623901A

PATIENT
  Age: 65 Year
  Sex: Male

DRUGS (11)
  1. COREG [Suspect]
     Dosage: 6.25MG TWICE PER DAY
     Route: 048
     Dates: start: 20050801
  2. NORVASC [Concomitant]
  3. ZOCOR [Concomitant]
  4. METFORMIN HCL [Concomitant]
  5. ALBUTEROL [Concomitant]
  6. SEREVENT [Concomitant]
  7. DIOVAN [Concomitant]
  8. SPIRONOLACTONE [Concomitant]
  9. FUROSEMIDE [Concomitant]
  10. GLIPIZIDE [Concomitant]
  11. AZMACORT [Concomitant]

REACTIONS (3)
  - BACK PAIN [None]
  - ILL-DEFINED DISORDER [None]
  - WEIGHT INCREASED [None]
